FAERS Safety Report 13900302 (Version 2)
Quarter: 2017Q3

REPORT INFORMATION
  Report Type: Spontaneous
  Country: US (occurrence: US)
  Receive Date: 20170823
  Receipt Date: 20170828
  Transmission Date: 20171127
  Serious: Yes (Other)
  Sender: FDA-Public Use
  Company Number: US-GILEAD-2017-0289419

PATIENT
  Age: 23 Year
  Sex: Male

DRUGS (5)
  1. SOVALDI [Suspect]
     Active Substance: SOFOSBUVIR
     Indication: CHRONIC HEPATITIS C
     Dosage: 400 MG, QD
     Route: 048
     Dates: start: 20140318
  2. PEGINTERFERON ALFA-2A. [Concomitant]
     Active Substance: PEGINTERFERON ALFA-2A
     Indication: CHRONIC HEPATITIS C
     Dosage: .180 MG, Q1WK
     Route: 058
     Dates: start: 20140318
  3. BUPRENORPHINE. [Concomitant]
     Active Substance: BUPRENORPHINE
  4. NALOXONE [Concomitant]
     Active Substance: NALOXONE
  5. RIBAVIRIN. [Suspect]
     Active Substance: RIBAVIRIN
     Indication: CHRONIC HEPATITIS C
     Dosage: 800 MG, QD
     Route: 048
     Dates: start: 20140318

REACTIONS (5)
  - Jaundice [Unknown]
  - Insomnia [Unknown]
  - Blood bilirubin increased [Unknown]
  - Blood bilirubin increased [Unknown]
  - Weight decreased [Unknown]

NARRATIVE: CASE EVENT DATE: 20140325
